FAERS Safety Report 19170488 (Version 1)
Quarter: 2021Q2

REPORT INFORMATION
  Report Type: Other
  Country: US (occurrence: US)
  Receive Date: 20210423
  Receipt Date: 20210423
  Transmission Date: 20210717
  Serious: Yes (Hospitalization, Other)
  Sender: FDA-Public Use
  Company Number: US-ROCHE-2814335

PATIENT
  Age: 51 Year
  Sex: Female

DRUGS (11)
  1. VALIUM [Suspect]
     Active Substance: DIAZEPAM
     Indication: PRODUCT USED FOR UNKNOWN INDICATION
     Route: 048
     Dates: start: 20200825
  2. NORCO [Concomitant]
     Active Substance: ACETAMINOPHEN\HYDROCODONE BITARTRATE
     Dosage: DAILY?75?325 MG PER TABLET
     Route: 048
     Dates: start: 20201020
  3. LACTOBACILLUS GASSERI [Concomitant]
     Dosage: TAKE BY MOUTH DAILY
     Route: 048
  4. COLACE [Concomitant]
     Active Substance: DOCUSATE SODIUM
     Dosage: TAKE 100 MG BY MOUTH DAILY
     Route: 048
  5. ZOCOR [Concomitant]
     Active Substance: SIMVASTATIN
     Dosage: TAKE 20 MG BY MOUTH DAILY
     Route: 048
     Dates: start: 20200817
  6. ELAVIL [Concomitant]
     Active Substance: AMITRIPTYLINE HYDROCHLORIDE
     Dosage: TAKE 1 TABLET BY MOUTH NIGHTLY?30 TABLET 11 STRIPS TILL 05/NOV/2021
     Route: 048
     Dates: start: 20201105
  7. OCREVUS [Suspect]
     Active Substance: OCRELIZUMAB
     Indication: MULTIPLE SCLEROSIS
     Dosage: 300 MG ON 15?DEC?2020 AND 300 MG ON 29?DEC?2020
     Route: 042
     Dates: start: 20201215, end: 20201229
  8. PRILOSEC [Concomitant]
     Active Substance: OMEPRAZOLE MAGNESIUM
     Dosage: TAKE 20 MG BY MOUTH 2 TIMES DAILY
     Route: 048
  9. WELLBUTRIN XL [Concomitant]
     Active Substance: BUPROPION HYDROCHLORIDE
     Dosage: TAKE 300 MG BY MOUTH DAILY
     Route: 048
     Dates: start: 20200825
  10. LIORESAL [Concomitant]
     Active Substance: BACLOFEN
     Dosage: TAKE 1 TABLET BY MOUTH THREE TIMES DAILY FOR 30 DAYS
     Route: 048
     Dates: start: 20201105, end: 20201205
  11. CYMBALTA [Concomitant]
     Active Substance: DULOXETINE HYDROCHLORIDE
     Dosage: TAKE 30 MG BY MOUTH 3 TIMES DAILY
     Route: 048
     Dates: start: 20200902

REACTIONS (2)
  - Cystitis [Recovered/Resolved]
  - Sepsis [Recovered/Resolved]

NARRATIVE: CASE EVENT DATE: 20210314
